FAERS Safety Report 5260848-0 (Version None)
Quarter: 2007Q1

REPORT INFORMATION
  Report Type: 
  Country: None (occurrence: None)
  Receive Date: 20070309
  Receipt Date: 20070228
  Transmission Date: 20070707
  Serious: Yes (Other)
  Sender: FDA-Public Use
  Company Number: AU-JNJFOC-20070300115

PATIENT
  Sex: Female

DRUGS (2)
  1. TOPAMAX [Suspect]
     Indication: EPILEPSY
  2. CITALOPRAM HYDROBROMIDE [Suspect]
     Indication: DEPRESSION

REACTIONS (3)
  - INTRACRANIAL PRESSURE INCREASED [None]
  - PSYCHOTIC DISORDER [None]
  - SHUNT MALFUNCTION [None]
